FAERS Safety Report 9405410 (Version 3)
Quarter: 2013Q4

REPORT INFORMATION
  Report Type: Spontaneous
  Country: US (occurrence: US)
  Receive Date: 20130717
  Receipt Date: 20131008
  Transmission Date: 20140711
  Serious: Yes (Other)
  Sender: FDA-Public Use
  Company Number: US-UCBSA-091699

PATIENT
  Age: 51 Year
  Sex: Female

DRUGS (4)
  1. CIMZIA [Suspect]
     Indication: RHEUMATOID ARTHRITIS
     Dates: start: 20130130, end: 20130403
  2. LIVALO [Concomitant]
     Indication: BLOOD CHOLESTEROL
  3. ESTROGEN [Concomitant]
  4. PROGESTERONE [Concomitant]

REACTIONS (4)
  - Pneumonia [Recovered/Resolved]
  - Enteritis infectious [Recovered/Resolved]
  - Exostosis [Not Recovered/Not Resolved]
  - Spinal column injury [Not Recovered/Not Resolved]
